FAERS Safety Report 4322545-5 (Version None)
Quarter: 2004Q1

REPORT INFORMATION
  Report Type: 
  Country: None (occurrence: None)
  Receive Date: 20040322
  Receipt Date: 20040322
  Transmission Date: 20041129
  Serious: Yes (Other)
  Sender: FDA-Public Use
  Company Number: None

PATIENT
  Age: 79 Year
  Sex: Male
  Weight: 53.5 kg

DRUGS (17)
  1. HYDROCHLOROTHIAZIDE [Suspect]
  2. ACETAMINOPHEN [Concomitant]
  3. OMEPRAZOLE [Concomitant]
  4. VENLAFAXINE SA [Concomitant]
  5. SERTRALINE HCL [Concomitant]
  6. ASPIRIN [Concomitant]
  7. LORAZEPAM [Concomitant]
  8. DOCUSATE SODIUM [Concomitant]
  9. NITROGLYCERIN [Concomitant]
  10. BISACODYL [Concomitant]
  11. ABSORBASE [Concomitant]
  12. TERAZOSIN HCL [Concomitant]
  13. CLOPIDOGREL [Concomitant]
  14. ATENOLOL [Concomitant]
  15. MILK OF MAGNESIA TAB [Concomitant]
  16. IBUPROFEN [Concomitant]
  17. RANITIDINE [Concomitant]

REACTIONS (1)
  - DRUG INTOLERANCE [None]
